FAERS Safety Report 5321476-1 (Version None)
Quarter: 2007Q2

REPORT INFORMATION
  Report Type: 
  Country: None (occurrence: None)
  Receive Date: 20070510
  Receipt Date: 20070503
  Transmission Date: 20071010
  Serious: Yes (Hospitalization)
  Sender: FDA-Public Use
  Company Number: D0053048A

PATIENT
  Age: 59 Year
  Sex: Female

DRUGS (6)
  1. AVANDIA [Suspect]
     Route: 048
  2. CEDUR RETARD [Concomitant]
     Dosage: 400MG PER DAY
     Route: 048
  3. NEXIUM [Concomitant]
     Dosage: 40MG PER DAY
     Route: 048
  4. DICLOFENAC [Concomitant]
     Dosage: 50MG THREE TIMES PER DAY
     Route: 048
  5. L-THYROXIN [Concomitant]
     Dosage: 75UG PER DAY
     Route: 048
  6. ACCUZIDE [Concomitant]
     Route: 048

REACTIONS (4)
  - ARTHRALGIA [None]
  - HIP FRACTURE [None]
  - MOBILITY DECREASED [None]
  - PATHOLOGICAL FRACTURE [None]
